FAERS Safety Report 25710743 (Version 1)
Quarter: 2025Q3

REPORT INFORMATION
  Report Type: Spontaneous
  Country: US (occurrence: None)
  Receive Date: 20250821
  Receipt Date: 20250821
  Transmission Date: 20251020
  Serious: Yes (Hospitalization)
  Sender: FDA-CTU
  Company Number: None

PATIENT
  Sex: Male

DRUGS (7)
  1. NYVEPRIA [Suspect]
     Active Substance: PEGFILGRASTIM-APGF
     Indication: Hodgkin^s disease
     Route: 058
     Dates: start: 20250502
  2. XEMBIFY SDV [Concomitant]
  3. HIZENTRA 20% PFS [Concomitant]
  4. HIZENTRA 20% PFS (4GM TOTAL) [Concomitant]
  5. HIZENTRA 20% PFS (2GM TOTAL) [Concomitant]
  6. LMX-4 CRM [Concomitant]
  7. EPINEPHRINE AUTO-INJ [Concomitant]

REACTIONS (1)
  - Pneumonia [None]
